FAERS Safety Report 4552002-2 (Version None)
Quarter: 2005Q1

REPORT INFORMATION
  Report Type: 
  Country: None (occurrence: None)
  Receive Date: 20050112
  Receipt Date: 20050105
  Transmission Date: 20050727
  Serious: Yes (Hospitalization, Other)
  Sender: FDA-Public Use
  Company Number: HQWYE429807JAN05

PATIENT
  Age: 77 Year
  Sex: Female

DRUGS (1)
  1. MINOYCIN (MINOCYCLINE, INJECTION) [Suspect]
     Indication: PNEUMONIA
     Dosage: 200 MG DAILY
     Route: 042
     Dates: start: 20041222, end: 20041227

REACTIONS (2)
  - DISEASE PROGRESSION [None]
  - INTERSTITIAL LUNG DISEASE [None]
